APPROVED DRUG PRODUCT: FABHALTA
Active Ingredient: IPTACOPAN HYDROCHLORIDE
Strength: EQ 200MG BASE
Dosage Form/Route: CAPSULE;ORAL
Application: N218276 | Product #001
Applicant: NOVARTIS PHARMACEUTICALS CORP
Approved: Dec 5, 2023 | RLD: Yes | RS: Yes | Type: RX

PATENTS:
Patent 12285422 | Expires: Aug 30, 2038
Patent 12453726 | Expires: Jul 15, 2041
Patent 10093663 | Expires: Jul 14, 2034
Patent 12384758 | Expires: May 17, 2041
Patent 12384758 | Expires: May 17, 2041
Patent 11951101 | Expires: Jul 15, 2041
Patent 11723901 | Expires: Aug 30, 2038
Patent 10093663 | Expires: Jul 14, 2034
Patent 9682968 | Expires: Jul 14, 2034
Patent 11603363 | Expires: May 25, 2041

EXCLUSIVITY:
Code: I-949 | Date: Aug 7, 2027
Code: I-963 | Date: Mar 20, 2028
Code: NCE | Date: Dec 5, 2028
Code: ODE-456 | Date: Dec 5, 2030